FAERS Safety Report 4399968-1 (Version None)
Quarter: 2004Q3

REPORT INFORMATION
  Report Type: 
  Country: None (occurrence: None)
  Receive Date: 20040716
  Receipt Date: 20040701
  Transmission Date: 20050211
  Serious: Yes (Other)
  Sender: FDA-Public Use
  Company Number: 2004221652GB

PATIENT
  Age: 72 Year
  Sex: Female

DRUGS (11)
  1. ARTHROTEC [Suspect]
     Dosage: ORAL
     Route: 048
  2. ALENDRONATE SODIUM [Concomitant]
  3. ADCAL (CARBAZOCHROME) [Concomitant]
  4. MORPHINE SULFATE [Concomitant]
  5. SEVREDOL [Concomitant]
  6. LACTULOSE [Concomitant]
  7. CO-PROXAMOL (DEXTROPROPOXYPHENE HYDROCHLORIDE) [Concomitant]
  8. PROCHLORPERAZINE [Concomitant]
  9. ASPIRIN [Concomitant]
  10. RANITIDINE [Concomitant]
  11. DIPYRIDAMOLE [Concomitant]

REACTIONS (2)
  - BLOOD POTASSIUM DECREASED [None]
  - INAPPROPRIATE ANTIDIURETIC HORMONE SECRETION [None]
